FAERS Safety Report 17423145 (Version 1)
Quarter: 2020Q1

REPORT INFORMATION
  Report Type: Spontaneous
  Country: JP (occurrence: JP)
  Receive Date: 20200216
  Receipt Date: 20200216
  Transmission Date: 20200409
  Serious: Yes (Hospitalization)
  Sender: FDA-Public Use
  Company Number: JP-BRISTOL-MYERS SQUIBB COMPANY-BMS-2020-011014

PATIENT
  Age: 79 Year
  Sex: Male

DRUGS (1)
  1. HYDREA [Suspect]
     Active Substance: HYDROXYUREA
     Indication: MYELOID LEUKAEMIA
     Dosage: 500 MG
     Route: 065

REACTIONS (3)
  - Intentional product use issue [Unknown]
  - Dehydration [Unknown]
  - Product dose omission [Unknown]
